FAERS Safety Report 5263203-2 (Version None)
Quarter: 2007Q1

REPORT INFORMATION
  Report Type: 
  Country: None (occurrence: None)
  Receive Date: 20061219
  Receipt Date: 20061101
  Transmission Date: 20070707
  Serious: No
  Sender: FDA-Public Use
  Company Number: 2006US002455

PATIENT
  Age: 63 Year
  Sex: Female

DRUGS (4)
  1. VESICARE [Suspect]
     Indication: HYPERTONIC BLADDER
     Dosage: 5 MG, UID/QD, ORAL
     Route: 048
     Dates: start: 20061024
  2. SYNTHROID [Concomitant]
  3. LIPITOR [Concomitant]
  4. VITAMINS [Concomitant]

REACTIONS (1)
  - VISION BLURRED [None]
